FAERS Safety Report 9511791 (Version 1)
Quarter: 2013Q1

REPORT INFORMATION
  Report Type: Spontaneous
  Country: US (occurrence: None)
  Receive Date: 20130305
  Receipt Date: 20130305
  Transmission Date: 20140127
  Serious: Yes (Other)
  Sender: FDA-Public Use
  Company Number: 163-21880-12052225

PATIENT
  Age: 76 Year
  Sex: Female

DRUGS (9)
  1. REVLIMID [Suspect]
     Indication: PLASMA CELL MYELOMA
     Dosage: 10 MG, 1 IN 1 D, PO
     Route: 048
     Dates: start: 20110509, end: 2011
  2. ACYCLOVIR (ACICLOVIR) (UNKNOWN) [Concomitant]
  3. FAMOTIDINE (FAMOTIDINE) (UNKNOWN) [Concomitant]
  4. SMZ-TMP DS (BACTRIM) (UNKNOWN) [Concomitant]
  5. DEXAMETHASONE (DEXAMETHASONE) (UNKNOWN) [Concomitant]
  6. ASPIRIN (ACETYLSALICYLIC ACID) (UNKNOWN) (ACETYLSALICYLIC ACID) [Concomitant]
  7. TEKTURNA (ALISKIREN) (UNKNOWN) [Concomitant]
  8. LOSARTAN POTASSIUM-HCTZ (HYDROCHLOROTHIAZIDE W/ LOSARTAN) (UNKNOWN) [Concomitant]
  9. LEVOTHYROXINE SODIUM (LEVOTHYROXINE SODIUM) [Concomitant]

REACTIONS (2)
  - Colitis ischaemic [None]
  - Decreased appetite [None]
